FAERS Safety Report 8483952-2 (Version None)
Quarter: 2012Q3

REPORT INFORMATION
  Report Type: 
  Country: None (occurrence: None)
  Receive Date: 20120703
  Receipt Date: 20120626
  Transmission Date: 20120928
  Serious: No
  Sender: FDA-Public Use
  Company Number: US-PFIZER INC-2012125317

PATIENT
  Sex: Female
  Weight: 46.712 kg

DRUGS (7)
  1. DIOVAN [Concomitant]
     Indication: HYPERTENSION
     Dosage: UNK
  2. CALCIUM [Concomitant]
     Dosage: UNK
  3. FENOFIBRATE [Concomitant]
     Dosage: UNK
  4. METOPROLOL [Concomitant]
     Indication: HEART RATE INCREASED
     Dosage: UNK
  5. TOVIAZ [Suspect]
     Indication: HYPERTONIC BLADDER
     Dosage: 8 MG, 2X/DAY
     Route: 048
     Dates: start: 20120520
  6. FEOSOL [Concomitant]
     Dosage: UNK
  7. MAGNESIUM [Concomitant]
     Dosage: UNK

REACTIONS (5)
  - DRUG INTOLERANCE [None]
  - DRY MOUTH [None]
  - DYSPHONIA [None]
  - FEELING ABNORMAL [None]
  - ASTHENIA [None]
